FAERS Safety Report 24458137 (Version 2)
Quarter: 2024Q4

REPORT INFORMATION
  Report Type: Report from Study
  Country: US (occurrence: US)
  Receive Date: 20241018
  Receipt Date: 20241030
  Transmission Date: 20250114
  Serious: Yes (Death, Hospitalization, Other)
  Sender: AIMMUNE
  Company Number: US-ZENPEP LLC-2024AIMT01459

PATIENT

DRUGS (2)
  1. ZENPEP [Suspect]
     Active Substance: PANCRELIPASE AMYLASE\PANCRELIPASE LIPASE\PANCRELIPASE PROTEASE
     Indication: Pancreatic failure
     Dosage: 25000 UPS 100CT CAPSULES
     Route: 048
  2. ZENPEP [Suspect]
     Active Substance: PANCRELIPASE AMYLASE\PANCRELIPASE LIPASE\PANCRELIPASE PROTEASE
     Dosage: 25000 UPS, ONCE, LAST DOSE PRIOR TO THE EVENT
     Route: 048

REACTIONS (10)
  - Death [Fatal]
  - Blood loss anaemia [Unknown]
  - Duodenal ulcer [Unknown]
  - Hypotension [Unknown]
  - Haematemesis [Unknown]
  - Clostridium difficile infection [Unknown]
  - Melaena [Unknown]
  - Pyrexia [Unknown]
  - Abdominal discomfort [Unknown]
  - Klebsiella infection [Unknown]

NARRATIVE: CASE EVENT DATE: 20231107
